FAERS Safety Report 5273807-9 (Version None)
Quarter: 2007Q1

REPORT INFORMATION
  Report Type: 
  Country: None (occurrence: None)
  Receive Date: 20070323
  Receipt Date: 20070312
  Transmission Date: 20070707
  Serious: Yes (Hospitalization, Other)
  Sender: FDA-Public Use
  Company Number: PHHO2007DE03012

PATIENT
  Age: 56 Year
  Sex: Female
  Weight: 99 kg

DRUGS (9)
  1. SANDOSTATIN LAR [Suspect]
     Indication: ACROMEGALY
     Dosage: 30MG MONTHLY
     Route: 030
     Dates: start: 20061122
  2. DOSTINEX [Suspect]
     Indication: ACROMEGALY
     Dosage: 0.5MG A WEEK
     Route: 048
     Dates: start: 20061122, end: 20061128
  3. DOSTINEX [Suspect]
     Dosage: 1MG A WEEK
     Route: 048
     Dates: start: 20061129, end: 20061205
  4. DOSTINEX [Suspect]
     Dosage: 1.5MG A WEEK
     Route: 048
     Dates: start: 20061206, end: 20061212
  5. DOSTINEX [Suspect]
     Dosage: 2MG A WEEK
     Route: 048
     Dates: start: 20061213, end: 20061219
  6. DOSTINEX [Suspect]
     Dosage: 2.5MG A WEEK
     Route: 048
     Dates: start: 20061220, end: 20061226
  7. DOSTINEX [Suspect]
     Dosage: 3MG A WEEK
     Route: 048
     Dates: start: 20061227, end: 20070102
  8. DOSTINEX [Suspect]
     Dosage: 3.5MG A WEEK
     Route: 048
     Dates: start: 20070103, end: 20070206
  9. DOSTINEX [Suspect]
     Dosage: 0.5MG A DAY
     Route: 048
     Dates: start: 20070207, end: 20070210

REACTIONS (2)
  - ADHESION [None]
  - EPISTAXIS [None]
